FAERS Safety Report 5713527-7 (Version None)
Quarter: 2008Q2

REPORT INFORMATION
  Report Type: 
  Country: None (occurrence: None)
  Receive Date: 20080422
  Receipt Date: 20080411
  Transmission Date: 20081010
  Serious: Yes (Other)
  Sender: FDA-Public Use
  Company Number: US-ELI_LILLY_AND_COMPANY-US200804002407

PATIENT
  Age: 65 Year
  Sex: Female

DRUGS (6)
  1. HUMALOG MIX 75/25 [Suspect]
     Dates: start: 20060901
  2. HUMALOG MIX 75/25 [Suspect]
  3. GLYBURIDE [Concomitant]
  4. ALPRAZOLAM [Concomitant]
  5. LISINOPRIL [Concomitant]
  6. FLEXERIL [Concomitant]

REACTIONS (11)
  - ARTHROPATHY [None]
  - BLOOD GLUCOSE INCREASED [None]
  - CEREBROVASCULAR ACCIDENT [None]
  - FALL [None]
  - INTERVERTEBRAL DISC PROTRUSION [None]
  - MEMORY IMPAIRMENT [None]
  - NEURALGIA [None]
  - PAIN [None]
  - RENAL IMPAIRMENT [None]
  - ROTATOR CUFF SYNDROME [None]
  - UPPER LIMB FRACTURE [None]
